FAERS Safety Report 16829770 (Version 3)
Quarter: 2019Q4

REPORT INFORMATION
  Report Type: Spontaneous
  Country: US (occurrence: US)
  Receive Date: 20190919
  Receipt Date: 20191105
  Transmission Date: 20200122
  Serious: No
  Sender: FDA-Public Use
  Company Number: US-009507513-1909USA004969

PATIENT
  Age: 79 Year
  Sex: Female
  Weight: 80.1 kg

DRUGS (1)
  1. KEYTRUDA [Suspect]
     Active Substance: PEMBROLIZUMAB
     Indication: NON-SMALL CELL LUNG CANCER
     Dosage: 200 MILLIGRAM EVERY 2 WEEKS
     Route: 042
     Dates: start: 20190822

REACTIONS (5)
  - Product preparation error [Unknown]
  - Incorrect drug administration rate [Unknown]
  - Product dispensing error [Unknown]
  - No adverse event [Unknown]
  - Inappropriate schedule of product administration [Unknown]

NARRATIVE: CASE EVENT DATE: 20190822
